FAERS Safety Report 23909783 (Version 3)
Quarter: 2024Q3

REPORT INFORMATION
  Report Type: Spontaneous
  Country: US (occurrence: US)
  Receive Date: 20240528
  Receipt Date: 20240703
  Transmission Date: 20241016
  Serious: No
  Sender: CALLIDITAS THERAPEUTICS
  Company Number: US-Calliditas-2024CAL00793

PATIENT
  Age: 62 Year
  Sex: Female
  Weight: 82 kg

DRUGS (9)
  1. TARPEYO [Suspect]
     Active Substance: BUDESONIDE
     Indication: IgA nephropathy
     Route: 048
     Dates: start: 20240408
  2. HERBALS\TURMERIC [Concomitant]
     Active Substance: HERBALS\TURMERIC
  3. VITAMIN C [Concomitant]
     Active Substance: ASCORBIC ACID
  4. CALCIUM MAGNESIUM [CALCIUM;MAGNESIUM] [Concomitant]
  5. VITAMINS [Concomitant]
     Active Substance: VITAMINS
  6. ATORVASTATIN [Concomitant]
     Active Substance: ATORVASTATIN
  7. FARXIGA [Concomitant]
     Active Substance: DAPAGLIFLOZIN PROPANEDIOL
  8. LOSARTAN [Concomitant]
     Active Substance: LOSARTAN
  9. COLCHICINE [Concomitant]
     Active Substance: COLCHICINE

REACTIONS (18)
  - Dizziness [Unknown]
  - Fatigue [Not Recovered/Not Resolved]
  - Weight increased [Not Recovered/Not Resolved]
  - Food craving [Not Recovered/Not Resolved]
  - Hunger [Unknown]
  - Chromaturia [Unknown]
  - Urine abnormality [Unknown]
  - Inappropriate schedule of product administration [Unknown]
  - Prescribed underdose [Recovered/Resolved]
  - Vision blurred [Unknown]
  - Hyperhidrosis [Unknown]
  - Thirst [Unknown]
  - Headache [Unknown]
  - Insomnia [Unknown]
  - Dry mouth [Unknown]
  - Pain [Unknown]
  - Cushingoid [Unknown]
  - Waist circumference increased [Unknown]

NARRATIVE: CASE EVENT DATE: 20240401
